FAERS Safety Report 25726089 (Version 1)
Quarter: 2025Q3

REPORT INFORMATION
  Report Type: Spontaneous
  Country: US (occurrence: None)
  Receive Date: 20250824
  Receipt Date: 20250824
  Transmission Date: 20251021
  Serious: Yes (Other)
  Sender: FDA-CTU
  Company Number: None

PATIENT
  Age: 75 Year
  Sex: Male
  Weight: 83.25 kg

DRUGS (18)
  1. OXERVATE [Suspect]
     Active Substance: CENEGERMIN-BKBJ
     Indication: Corneal disorder
     Route: 047
     Dates: start: 20250821, end: 20250821
  2. METFORMIN [Concomitant]
     Active Substance: METFORMIN HYDROCHLORIDE
  3. KEFLEX [Concomitant]
     Active Substance: CEPHALEXIN
  4. ELIQUIS [Concomitant]
     Active Substance: APIXABAN
  5. LOSARTAN [Concomitant]
     Active Substance: LOSARTAN
  6. JAKAFI [Concomitant]
     Active Substance: RUXOLITINIB
  7. PREDNISONE [Concomitant]
     Active Substance: PREDNISONE
  8. GLIPIZIDE [Concomitant]
     Active Substance: GLIPIZIDE
  9. JARDIANCE [Concomitant]
     Active Substance: EMPAGLIFLOZIN
  10. ROSUVASTATIN [Concomitant]
     Active Substance: ROSUVASTATIN
  11. SPIRONOLACTONE [Concomitant]
     Active Substance: SPIRONOLACTONE
  12. TORSEMIDE [Concomitant]
     Active Substance: TORSEMIDE
  13. VALACYCLOVIR [Concomitant]
     Active Substance: VALACYCLOVIR HYDROCHLORIDE
  14. POTASSIUM [Concomitant]
     Active Substance: POTASSIUM
  15. ATOVAQUONE [Concomitant]
     Active Substance: ATOVAQUONE
  16. VITAMIN E [Concomitant]
     Active Substance: .ALPHA.-TOCOPHEROL
  17. FISH OIL [Concomitant]
     Active Substance: FISH OIL
  18. CHONDROITIN SULFATE (BOVINE)\GLUCOSAMINE SULFATE [Concomitant]
     Active Substance: CHONDROITIN SULFATE (BOVINE)\GLUCOSAMINE SULFATE

REACTIONS (1)
  - Eye pain [None]

NARRATIVE: CASE EVENT DATE: 20250821
